FAERS Safety Report 8100874-7 (Version None)
Quarter: 2012Q1

REPORT INFORMATION
  Report Type: 
  Country: None (occurrence: None)
  Receive Date: 20120129
  Receipt Date: 20110908
  Transmission Date: 20120608
  Serious: No
  Sender: FDA-Public Use
  Company Number: US-ABBOTT-11P-163-0852944-00

PATIENT
  Age: 47 Year
  Sex: Male

DRUGS (6)
  1. HUMIRA [Suspect]
     Indication: PSORIASIS
     Dates: start: 20110908
  2. LORTAB [Concomitant]
     Indication: PAIN
     Dosage: 5/500, PRN
  3. FLEXERIL [Concomitant]
     Indication: NECK PAIN
  4. HUMIRA [Suspect]
     Indication: PSORIATIC ARTHROPATHY
     Dosage: 2 INJECTIONS IN OFFICE VIA SAMPLES
     Dates: start: 20110818, end: 20110818
  5. SKELAXIN [Concomitant]
     Indication: NECK PAIN
  6. NAPROXEN [Concomitant]
     Indication: PRODUCT USED FOR UNKNOWN INDICATION

REACTIONS (3)
  - PSORIASIS [None]
  - PAIN [None]
  - PSORIATIC ARTHROPATHY [None]
